FAERS Safety Report 23745985 (Version 1)
Quarter: 2024Q2

REPORT INFORMATION
  Report Type: Spontaneous
  Country: GB (occurrence: GB)
  Receive Date: 20240416
  Receipt Date: 20240416
  Transmission Date: 20240715
  Serious: Yes (Hospitalization)
  Sender: FDA-Public Use
  Company Number: None

PATIENT
  Age: 83 Year
  Sex: Female

DRUGS (28)
  1. WARFARIN [Suspect]
     Active Substance: WARFARIN
     Route: 065
  2. WARFARIN [Suspect]
     Active Substance: WARFARIN
     Route: 065
  3. ALBUTEROL [Concomitant]
     Active Substance: ALBUTEROL
     Indication: Dyspnoea
     Dosage: TIME INTERVAL: AS NECESSARY: ONE OR TWO PUFFS TO BE INHALED FOR BREATHLESSNESS
  4. DICLOFENAC [Concomitant]
     Active Substance: DICLOFENAC
     Dosage: APPLY THREE OR FOUR TIMES A DAY
  5. FUROSEMIDE [Concomitant]
     Active Substance: FUROSEMIDE
     Dosage: EACH LUNCHTIME
  6. FUROSEMIDE [Concomitant]
     Active Substance: FUROSEMIDE
     Dosage: EACH MORNING
  7. BISOPROLOL [Concomitant]
     Active Substance: BISOPROLOL\BISOPROLOL FUMARATE
     Dosage: IN THE MORNING
  8. BISOPROLOL [Concomitant]
     Active Substance: BISOPROLOL\BISOPROLOL FUMARATE
  9. ALLOPURINOL [Concomitant]
     Active Substance: ALLOPURINOL
  10. MORPHINE SULFATE [Concomitant]
     Active Substance: MORPHINE SULFATE
     Indication: Pain in extremity
     Dosage: TIME INTERVAL: AS NECESSARY: 10 MG / 5 ML ORAL SOLUTION ADMINISTER 2.5 ML  IN THE NIGHT TIME.
  11. PREGABALIN [Concomitant]
     Active Substance: PREGABALIN
  12. POTASSIUM BICARBONATE\SODIUM ALGINATE [Concomitant]
     Active Substance: POTASSIUM BICARBONATE\SODIUM ALGINATE
     Dosage: ONE OR TWO 5 ML SPOONFULS TO BE TAKEN AFTER MEALS AND AT BEDTIME
  13. ACETAMINOPHEN [Concomitant]
     Active Substance: ACETAMINOPHEN
     Indication: Pain
     Dosage: ONE OR TWO TO BE TAKEN EVERY 4 - 6 HOURS UP TO FOUR TIMES A DAY
  14. ZOPICLONE [Concomitant]
     Active Substance: ZOPICLONE
     Dosage: AT NIGHT
  15. FLUTICASONE PROPIONATE\FORMOTEROL FUMARATE [Concomitant]
     Active Substance: FLUTICASONE PROPIONATE\FORMOTEROL FUMARATE
  16. FERROUS FUMARATE [Concomitant]
     Active Substance: FERROUS FUMARATE
  17. LANSOPRAZOLE [Concomitant]
     Active Substance: LANSOPRAZOLE
     Dosage: EACH MORNING
  18. POLYETHYLENE GLYCOL 3350\POTASSIUM CHLORIDE\SODIUM BICARBONATE\SODIUM [Concomitant]
     Active Substance: POLYETHYLENE GLYCOL 3350\POTASSIUM CHLORIDE\SODIUM BICARBONATE\SODIUM CHLORIDE
     Dosage: WITH WATER. ONCE SOFT STOOL PASSED REDUCE TO 1 DAILY
  19. TRAMADOL [Concomitant]
     Active Substance: TRAMADOL\TRAMADOL HYDROCHLORIDE
     Indication: Pain
     Dosage: ONE OR TWO TO BE TAKEN UP TO FOUR TIMES A DAY
  20. DAPAGLIFLOZIN [Concomitant]
     Active Substance: DAPAGLIFLOZIN
  21. UNSPECIFIED INGREDIENT [Concomitant]
     Active Substance: UNSPECIFIED INGREDIENT
  22. RISEDRONATE SODIUM [Concomitant]
     Active Substance: RISEDRONATE SODIUM
  23. MONTELUKAST [Concomitant]
     Active Substance: MONTELUKAST SODIUM
     Dosage: AT NIGHT
  24. ATORVASTATIN [Concomitant]
     Active Substance: ATORVASTATIN
  25. CEPHALEXIN [Concomitant]
     Active Substance: CEPHALEXIN
     Dosage: TIME INTERVAL: 0.33333333 DAYS
  26. LEVOTHYROXINE SODIUM [Concomitant]
     Active Substance: LEVOTHYROXINE SODIUM
     Dosage: IN THE MORNING
  27. LEVOTHYROXINE SODIUM [Concomitant]
     Active Substance: LEVOTHYROXINE SODIUM
     Dosage: IN THE MORNING
  28. KETOCONAZOLE [Concomitant]
     Active Substance: KETOCONAZOLE
     Dosage: TWICE A WEEK FOR 4 WEEKS, THEN ONCE EVERY 1 - 2 WEEKS FOR MAINTENANCE

REACTIONS (1)
  - Cerebrovascular accident [Unknown]
